FAERS Safety Report 24996375 (Version 1)
Quarter: 2025Q1

REPORT INFORMATION
  Report Type: Spontaneous
  Country: US (occurrence: None)
  Receive Date: 20250221
  Receipt Date: 20250221
  Transmission Date: 20250408
  Serious: No
  Sender: FDA-CTU
  Company Number: None

PATIENT
  Age: 55 Year
  Sex: Female
  Weight: 81 kg

DRUGS (2)
  1. COLESEVELAM [Suspect]
     Active Substance: COLESEVELAM
     Indication: Hyperlipidaemia
     Dosage: FREQUENCY : DAILY;?
     Route: 048
     Dates: start: 20250130, end: 20250221
  2. dhea 2 mg, bi-est 1mg, test 1mg, prog100 mg per gram cream. 2 click q [Concomitant]
     Dates: start: 20230801, end: 20250221

REACTIONS (1)
  - Rash [None]

NARRATIVE: CASE EVENT DATE: 20250221
